FAERS Safety Report 9613484 (Version 3)
Quarter: 2013Q4

REPORT INFORMATION
  Report Type: Report from Study
  Country: KR (occurrence: KR)
  Receive Date: 20131010
  Receipt Date: 20131107
  Transmission Date: 20140711
  Serious: Yes (Hospitalization, Other)
  Sender: FDA-Public Use
  Company Number: KR-ELI_LILLY_AND_COMPANY-KR201309000891

PATIENT
  Age: 60 Year
  Sex: Female

DRUGS (3)
  1. LISPRO 25LIS75NPL KWIKPEN / MIRIOPEN [Suspect]
     Indication: TYPE 2 DIABETES MELLITUS
     Dosage: 16 U, QD
     Route: 058
     Dates: start: 201308, end: 20130905
  2. LISPRO 25LIS75NPL KWIKPEN / MIRIOPEN [Suspect]
     Dosage: 4 U, QD
     Route: 058
     Dates: start: 201308, end: 20130905
  3. LISPRO 25LIS75NPL KWIKPEN / MIRIOPEN [Suspect]
     Dosage: 16 U, QD
     Dates: start: 20130905

REACTIONS (5)
  - Shock hypoglycaemic [Unknown]
  - Hypoglycaemic unconsciousness [Unknown]
  - Hypoglycaemia [Unknown]
  - Blood glucose increased [Recovering/Resolving]
  - Hypoglycaemia [Unknown]
